FAERS Safety Report 14367581 (Version 2)
Quarter: 2018Q1

REPORT INFORMATION
  Report Type: Spontaneous
  Country: US (occurrence: US)
  Receive Date: 20180109
  Receipt Date: 20180301
  Transmission Date: 20180509
  Serious: Yes (Hospitalization, Other)
  Sender: FDA-Public Use
  Company Number: US-GLAXOSMITHKLINE-US2018002349

PATIENT
  Sex: Male
  Weight: 85.26 kg

DRUGS (2)
  1. LOVAZA [Suspect]
     Active Substance: OMEGA-3-ACID ETHYL ESTERS
     Indication: NUTRITIONAL SUPPLEMENTATION
     Dosage: 1 DF, QD
     Route: 048
     Dates: start: 2009
  2. LYRICA [Concomitant]
     Active Substance: PREGABALIN

REACTIONS (3)
  - Ulcer haemorrhage [Recovered/Resolved]
  - Faeces discoloured [Recovered/Resolved]
  - Stress [Unknown]
